FAERS Safety Report 4880811-9 (Version None)
Quarter: 2006Q1

REPORT INFORMATION
  Report Type: 
  Country: None (occurrence: None)
  Receive Date: 20060111
  Receipt Date: 20051206
  Transmission Date: 20060701
  Serious: No
  Sender: FDA-Public Use
  Company Number: 2005S1000148

PATIENT
  Age: 48 Year
  Weight: 107 kg

DRUGS (15)
  1. CUBICIN [Suspect]
     Indication: WOUND INFECTION STAPHYLOCOCCAL
     Dosage: 660 MG;Q24H;IV
     Route: 042
  2. INSULIN [Concomitant]
  3. CORDARONE [Concomitant]
  4. AMLODIPINE [Concomitant]
  5. ASCORBIC ACID [Concomitant]
  6. LOTENSIN [Concomitant]
  7. CIPROFLOXACIN HCL [Concomitant]
  8. CLEOCIN [Concomitant]
  9. CATAPRES [Concomitant]
  10. VANCOMYCIN [Concomitant]
  11. ESCITALOPRAM OXALATE [Concomitant]
  12. EZETIMIBE [Concomitant]
  13. MULTIPLE VITAMIN [Concomitant]
  14. WARFARIN SODIUM [Concomitant]
  15. ZINC [Concomitant]

REACTIONS (1)
  - ARTHRALGIA [None]
